FAERS Safety Report 8517812-5 (Version None)
Quarter: 2012Q3

REPORT INFORMATION
  Report Type: 
  Country: None (occurrence: None)
  Receive Date: 20120712
  Receipt Date: 20120712
  Transmission Date: 20120928
  Serious: Yes (Hospitalization)
  Sender: FDA-Public Use
  Company Number: None

PATIENT
  Age: 69 Year
  Sex: Female
  Weight: 55 kg

DRUGS (1)
  1. PACLITAXEL [Suspect]
     Dosage: 125MG EVERY 28 DAYS IV
     Route: 042
     Dates: start: 20120113, end: 20120323

REACTIONS (4)
  - STAPHYLOCOCCAL INFECTION [None]
  - LUNG INFILTRATION [None]
  - PNEUMONIA [None]
  - HYPOXIA [None]
